FAERS Safety Report 8096442-6 (Version None)
Quarter: 2012Q1

REPORT INFORMATION
  Report Type: 
  Country: None (occurrence: None)
  Receive Date: 20120129
  Receipt Date: 20111209
  Transmission Date: 20120608
  Serious: No
  Sender: FDA-Public Use
  Company Number: US-ABBOTT-11P-163-0882887-00

PATIENT
  Sex: Male
  Weight: 111.23 kg

DRUGS (3)
  1. UNKNOWN MEDICATION [Concomitant]
     Indication: BLOOD CHOLESTEROL INCREASED
  2. UNKNOWN MEDICATION [Concomitant]
     Indication: HYPERTENSION
  3. HUMIRA [Suspect]
     Indication: PSORIASIS
     Dates: start: 20110801, end: 20111117

REACTIONS (7)
  - OEDEMA PERIPHERAL [None]
  - RASH [None]
  - DRUG INEFFECTIVE [None]
  - INFECTION [None]
  - SECRETION DISCHARGE [None]
  - PROSTATIC SPECIFIC ANTIGEN INCREASED [None]
  - PSORIASIS [None]
